FAERS Safety Report 10012822 (Version 1)
Quarter: 2014Q1

REPORT INFORMATION
  Report Type: Spontaneous
  Country: GB (occurrence: GB)
  Receive Date: 20140314
  Receipt Date: 20140314
  Transmission Date: 20141002
  Serious: Yes (Hospitalization, Other)
  Sender: FDA-Public Use
  Company Number: PHHY2014GB027795

PATIENT
  Sex: Female

DRUGS (7)
  1. ZOLEDRONIC ACID [Suspect]
     Indication: BLOOD CALCIUM INCREASED
     Route: 042
  2. CARBOPLATIN [Suspect]
     Indication: CHEMOTHERAPY
  3. PACLITAXEL [Suspect]
     Indication: CHEMOTHERAPY
  4. DOXORUBICIN [Suspect]
     Indication: CHEMOTHERAPY
  5. TOPOTECAN [Suspect]
     Indication: CHEMOTHERAPY
  6. ETOPOSIDE [Suspect]
     Indication: CHEMOTHERAPY
  7. CHEMOTHERAPEUTICS [Concomitant]
     Indication: OVARIAN CANCER

REACTIONS (6)
  - Blood calcium increased [Recovered/Resolved]
  - Constipation [Recovered/Resolved]
  - Lethargy [Recovered/Resolved]
  - Malignant neoplasm progression [Unknown]
  - Toxicity to various agents [Unknown]
  - Therapeutic response decreased [Unknown]
